FAERS Safety Report 10058235 (Version 1)
Quarter: 2014Q2

REPORT INFORMATION
  Report Type: Spontaneous
  Country: ES (occurrence: US)
  Receive Date: 20140404
  Receipt Date: 20140404
  Transmission Date: 20141212
  Serious: Yes (Other)
  Sender: FDA-Public Use
  Company Number: ES-RANBAXY-2014US-79898

PATIENT
  Sex: Male

DRUGS (5)
  1. IBUPROFEN [Suspect]
     Indication: PRODUCT USED FOR UNKNOWN INDICATION
     Dosage: UNK
     Route: 065
  2. ATORVASTATIN [Suspect]
     Indication: PRODUCT USED FOR UNKNOWN INDICATION
     Dosage: UNK
     Route: 065
  3. PREGABALIN [Suspect]
     Indication: PRODUCT USED FOR UNKNOWN INDICATION
     Dosage: UNK
     Route: 065
  4. SILDENAFIL [Suspect]
     Indication: PRODUCT USED FOR UNKNOWN INDICATION
     Dosage: UNK
     Route: 065
  5. VITAMINS [Concomitant]
     Indication: PRODUCT USED FOR UNKNOWN INDICATION
     Dosage: UNK
     Route: 065

REACTIONS (19)
  - Erectile dysfunction [Unknown]
  - Visual acuity reduced [Unknown]
  - Vision blurred [Unknown]
  - Shoulder operation [Unknown]
  - Pain in extremity [Unknown]
  - Neuropathy peripheral [Unknown]
  - Nasal congestion [Unknown]
  - Myalgia [Unknown]
  - Herpes zoster [Unknown]
  - Feeling drunk [Unknown]
  - Feeling abnormal [Unknown]
  - Euphoric mood [Unknown]
  - Dyspnoea [Unknown]
  - Drug tolerance [Unknown]
  - Drug ineffective [Unknown]
  - Diabetes mellitus [Unknown]
  - Coordination abnormal [Unknown]
  - Blood cholesterol increased [Unknown]
  - Balance disorder [Unknown]
